FAERS Safety Report 23372663 (Version 1)
Quarter: 2024Q1

REPORT INFORMATION
  Report Type: Spontaneous
  Country: US (occurrence: US)
  Receive Date: 20240105
  Receipt Date: 20240105
  Transmission Date: 20240410
  Serious: No
  Sender: FDA-Public Use
  Company Number: US-COOPERSURGICAL, INC.-US-2023CPS000569

PATIENT
  Age: 37 Year
  Sex: Female
  Weight: 94.331 kg

DRUGS (2)
  1. PARAGARD T 380A [Suspect]
     Active Substance: COPPER
     Indication: Contraception
     Dosage: UNK
     Route: 015
     Dates: start: 20220211
  2. MATZIM LA [Concomitant]
     Active Substance: DILTIAZEM HYDROCHLORIDE
     Indication: Product used for unknown indication
     Dosage: UNK
     Route: 065

REACTIONS (9)
  - Device issue [Not Recovered/Not Resolved]
  - Abnormal uterine bleeding [Unknown]
  - Dyspareunia [Unknown]
  - Pain [Unknown]
  - Menstruation irregular [Unknown]
  - Device dislocation [Not Recovered/Not Resolved]
  - Discomfort [Unknown]
  - Pelvic pain [Unknown]
  - Dysmenorrhoea [Unknown]

NARRATIVE: CASE EVENT DATE: 20230111
